FAERS Safety Report 4509349-5 (Version None)
Quarter: 2004Q4

REPORT INFORMATION
  Report Type: 
  Country: None (occurrence: None)
  Receive Date: 20041123
  Receipt Date: 20031217
  Transmission Date: 20050328
  Serious: Yes (Death)
  Sender: FDA-Public Use
  Company Number: FR-MERCK-0312FRA00060

PATIENT
  Age: 73 Year
  Sex: Male
  Weight: 74 kg

DRUGS (8)
  1. PRIMAXIN [Suspect]
     Indication: SEPSIS
     Route: 041
     Dates: start: 20031020, end: 20031024
  2. PRIMAXIN [Suspect]
     Route: 041
     Dates: start: 20031108, end: 20031113
  3. VANCOMYCIN HYDROCHLORIDE [Concomitant]
     Indication: SEPSIS
     Route: 041
     Dates: start: 20031020, end: 20031028
  4. VANCOMYCIN HYDROCHLORIDE [Concomitant]
     Route: 041
     Dates: start: 20030101, end: 20030101
  5. OMEPRAZOLE [Concomitant]
     Route: 042
     Dates: start: 20031102
  6. PIPERACILLIN SODIUM AND TAZOBACTAM SODIUM [Concomitant]
     Indication: SEPSIS
     Route: 041
     Dates: start: 20031105, end: 20031109
  7. FLUCONAZOLE [Concomitant]
     Route: 042
     Dates: start: 20031016, end: 20031109
  8. FUROSEMIDE [Concomitant]
     Route: 042

REACTIONS (2)
  - SEPTIC SHOCK [None]
  - TOXIC EPIDERMAL NECROLYSIS [None]
